FAERS Safety Report 9069859 (Version 1)
Quarter: 2013Q1

REPORT INFORMATION
  Report Type: Spontaneous
  Country: US (occurrence: US)
  Receive Date: 20130215
  Receipt Date: 20130215
  Transmission Date: 20140127
  Serious: Yes (Other)
  Sender: FDA-Public Use
  Company Number: CHPA2013US002863

PATIENT
  Sex: Female

DRUGS (1)
  1. GAS-X UNKNOWN [Suspect]
     Dosage: UNK, UNK
     Route: 048

REACTIONS (2)
  - Asthma [Unknown]
  - Dyspnoea [Unknown]
